FAERS Safety Report 7480343-8 (Version None)
Quarter: 2011Q2

REPORT INFORMATION
  Report Type: 
  Country: None (occurrence: None)
  Receive Date: 20110504
  Receipt Date: 20110426
  Transmission Date: 20111010
  Serious: Yes (Life-Threatening, Hospitalization)
  Sender: FDA-Public Use
  Company Number: WWISSUE-590

PATIENT
  Age: 81 Year
  Sex: Female

DRUGS (5)
  1. CEFTRIAXONE [Suspect]
     Indication: INFECTION
     Dosage: INJECTION (1G/10ML)
     Dates: start: 20110416
  2. LISINOPRIL [Concomitant]
  3. ZYPREXA [Concomitant]
  4. PRAVASTATIN [Concomitant]
  5. GALANTAMINE HYDROBROMIDE [Concomitant]

REACTIONS (7)
  - INCREASED BRONCHIAL SECRETION [None]
  - UNRESPONSIVE TO STIMULI [None]
  - CARDIO-RESPIRATORY ARREST [None]
  - TONIC CONVULSION [None]
  - HYPOPNOEA [None]
  - DRUG HYPERSENSITIVITY [None]
  - ANAPHYLACTIC REACTION [None]
